FAERS Safety Report 9362156 (Version 1)
Quarter: 2013Q2

REPORT INFORMATION
  Report Type: Spontaneous
  Country: US (occurrence: US)
  Receive Date: 20130621
  Receipt Date: 20130621
  Transmission Date: 20140414
  Serious: Yes (Hospitalization)
  Sender: FDA-Public Use
  Company Number: US-RB-055149-13

PATIENT
  Sex: Female

DRUGS (6)
  1. SUBOXONE FILM [Suspect]
     Dosage: SUBOXONE FILM
     Route: 060
     Dates: start: 201011, end: 201302
  2. SUBOXONE FILM [Suspect]
     Indication: DRUG DEPENDENCE
     Dosage: SUBOXONE FILM; CUTTING FILM TO ACHIEVE 4 MG DAILY DOSE, BUT SOMETIMES NOT TAKING FOR A FEW DAYS
     Route: 060
     Dates: start: 201302
  3. PERCOCET [Suspect]
     Indication: PAIN
     Dosage: 3 - 4 TIMES A DAY
     Route: 048
     Dates: start: 201304
  4. AMLODIPINE [Concomitant]
     Indication: HYPERTENSION
     Route: 048
  5. METOPROLOL [Concomitant]
     Indication: HYPERTENSION
     Route: 048
  6. PREDNISONE [Concomitant]
     Indication: PRODUCT USED FOR UNKNOWN INDICATION
     Dosage: UNKNOWN DOSING DETAILS
     Route: 048
     Dates: start: 201209

REACTIONS (10)
  - Wrong technique in drug usage process [Not Recovered/Not Resolved]
  - Pulmonary embolism [Recovered/Resolved]
  - Cardiomegaly [Recovered/Resolved]
  - Pneumonia [Recovered/Resolved]
  - Abdominal pain [Not Recovered/Not Resolved]
  - Underdose [Not Recovered/Not Resolved]
  - Dizziness [Not Recovered/Not Resolved]
  - Feeling abnormal [Not Recovered/Not Resolved]
  - Hypertension [Not Recovered/Not Resolved]
  - Fungal infection [Recovered/Resolved]
